FAERS Safety Report 4339879-0 (Version None)
Quarter: 2004Q2

REPORT INFORMATION
  Report Type: 
  Country: None (occurrence: None)
  Receive Date: 20040416
  Receipt Date: 20040402
  Transmission Date: 20050107
  Serious: Yes (Hospitalization)
  Sender: FDA-Public Use
  Company Number: 200411430FR

PATIENT
  Sex: Male

DRUGS (1)
  1. FLAGYL [Suspect]
     Dosage: DOSE: 2-2-2; DOSE UNIT: UNITS
     Route: 048
     Dates: start: 20020501

REACTIONS (13)
  - AMYOTROPHY [None]
  - ANORECTAL DISORDER [None]
  - DYSAESTHESIA [None]
  - FRACTURE [None]
  - GUILLAIN-BARRE SYNDROME [None]
  - HYPERAESTHESIA [None]
  - MENTAL DISORDER [None]
  - PAIN IN EXTREMITY [None]
  - PARAESTHESIA [None]
  - PERIPHERAL SENSORY NEUROPATHY [None]
  - ROAD TRAFFIC ACCIDENT [None]
  - SPEECH DISORDER [None]
  - WEIGHT DECREASED [None]
